FAERS Safety Report 8265562-5 (Version None)
Quarter: 2012Q2

REPORT INFORMATION
  Report Type: 
  Country: None (occurrence: None)
  Receive Date: 20120406
  Receipt Date: 20120127
  Transmission Date: 20120825
  Serious: Yes (Other)
  Sender: FDA-Public Use
  Company Number: US-BRISTOL-MYERS SQUIBB COMPANY-16373201

PATIENT

DRUGS (1)
  1. NULOJIX [Suspect]

REACTIONS (1)
  - TRANSPLANT REJECTION [None]
